FAERS Safety Report 6554258-3 (Version None)
Quarter: 2010Q1

REPORT INFORMATION
  Report Type: 
  Country: None (occurrence: None)
  Receive Date: 20100127
  Receipt Date: 20100126
  Transmission Date: 20100710
  Serious: Yes (Other)
  Sender: FDA-Public Use
  Company Number: JP-SANOFI-AVENTIS-2010SA000481

PATIENT
  Age: 92 Year
  Sex: Male
  Weight: 46.2 kg

DRUGS (12)
  1. PLAVIX [Suspect]
     Route: 048
     Dates: start: 20080108
  2. LANIRAPID [Concomitant]
     Dosage: AFTER BREAKFAST
     Route: 048
  3. ARTANE [Concomitant]
     Dosage: AFTER BREAKFAST AND DINNER
     Route: 048
  4. MADOPAR [Concomitant]
     Dosage: 2T/2 AFTER BREAKFAST AND DINNER
     Route: 048
  5. ANPLAG [Concomitant]
     Dosage: AFTER EACH MEAL
     Route: 048
  6. REQUIP [Concomitant]
     Dosage: AFTER EACH MEAL
     Route: 048
  7. REQUIP [Concomitant]
     Dosage: AFTER EACH MEAL
     Route: 048
  8. ALESION [Concomitant]
     Dosage: AFTER BREAKFAST AND DINNER
     Route: 048
  9. NAUZELIN [Concomitant]
     Dosage: AFTER EACH MEAL
     Route: 048
  10. MAGNESIUM HYDROXIDE TAB [Concomitant]
     Route: 048
  11. TULOBUTEROL [Concomitant]
     Route: 062
  12. FLUTIDE DISKUS [Concomitant]
     Route: 065

REACTIONS (1)
  - HYPERKALAEMIA [None]
